FAERS Safety Report 25434816 (Version 1)
Quarter: 2025Q2

REPORT INFORMATION
  Report Type: Spontaneous
  Country: US (occurrence: US)
  Receive Date: 20250613
  Receipt Date: 20250613
  Transmission Date: 20250716
  Serious: No
  Sender: PFIZER
  Company Number: US-PFIZER INC-202500120230

PATIENT
  Age: 67 Year
  Sex: Male

DRUGS (1)
  1. TALZENNA [Suspect]
     Active Substance: TALAZOPARIB TOSYLATE
     Dosage: 0.5 MG, 1X/DAY (TAKE 1 CAPSULE EVERY EVENING)
     Route: 048

REACTIONS (2)
  - Dry mouth [Unknown]
  - Dry eye [Unknown]
